FAERS Safety Report 10521639 (Version 1)
Quarter: 2014Q4

REPORT INFORMATION
  Report Type: Spontaneous
  Country: US (occurrence: None)
  Receive Date: 20141014
  Receipt Date: 20141014
  Transmission Date: 20150528
  Serious: Yes (Other)
  Sender: FDA-Public Use
  Company Number: CIO14068516

PATIENT
  Sex: Female

DRUGS (2)
  1. UNSPECIFIED IMMUNODEFICIENCY MEDICATION [Concomitant]
  2. CREST SENSITIVITY CLINICAL SENSITIVITY RELIEF [Suspect]
     Active Substance: POTASSIUM NITRATE\SODIUM FLUORIDE
     Dosage: ONE PEARL DROP SIZE ONE TIME, INTRAORAL
     Dates: start: 20141001, end: 20141001

REACTIONS (9)
  - Lip pain [None]
  - Dyspnoea [None]
  - Lip swelling [None]
  - Oral pain [None]
  - Oedema mouth [None]
  - Rash [None]
  - Skin disorder [None]
  - Dysgeusia [None]
  - Urticaria [None]

NARRATIVE: CASE EVENT DATE: 20141001
